FAERS Safety Report 7989457-7 (Version None)
Quarter: 2011Q4

REPORT INFORMATION
  Report Type: 
  Country: None (occurrence: None)
  Receive Date: 20111219
  Receipt Date: 20111208
  Transmission Date: 20120403
  Serious: Yes (Hospitalization)
  Sender: FDA-Public Use
  Company Number: JP-JNJFOC-20111204946

PATIENT
  Age: 43 Year
  Sex: Male

DRUGS (3)
  1. AZULFIDINE [Concomitant]
     Route: 048
  2. REMICADE [Suspect]
     Indication: ANKYLOSING SPONDYLITIS
     Dosage: 3 INFUSIONS TOTAL
     Route: 042
  3. REMICADE [Suspect]
     Route: 042
     Dates: start: 20111005

REACTIONS (2)
  - FRACTURE [None]
  - FALL [None]
